FAERS Safety Report 8094372-7 (Version None)
Quarter: 2012Q1

REPORT INFORMATION
  Report Type: 
  Country: None (occurrence: None)
  Receive Date: 20120130
  Receipt Date: 20120118
  Transmission Date: 20120608
  Serious: Yes (Hospitalization)
  Sender: FDA-Public Use
  Company Number: TR-PAR PHARMACEUTICAL, INC-2012SCPR003914

PATIENT

DRUGS (3)
  1. RISPERIDONE [Suspect]
     Indication: AGITATION
     Dosage: 1MG/DAY (0.03 MG/KG)
     Route: 065
  2. RISPERIDONE [Suspect]
     Dosage: 0.5 MG, / DAY
     Route: 065
  3. RISPERIDONE [Suspect]
     Dosage: 0.25 MG, / DAY
     Route: 065

REACTIONS (4)
  - MICTURITION URGENCY [None]
  - URINARY INCONTINENCE [None]
  - FAECAL INCONTINENCE [None]
  - DEFAECATION URGENCY [None]
